FAERS Safety Report 18072216 (Version 1)
Quarter: 2020Q3

REPORT INFORMATION
  Report Type: Spontaneous
  Country: US (occurrence: US)
  Receive Date: 20200724
  Receipt Date: 20200724
  Transmission Date: 20201103
  Serious: No
  Sender: FDA-Public Use
  Company Number: None

PATIENT
  Age: 44 Year
  Sex: Female
  Weight: 74.84 kg

DRUGS (7)
  1. VITAMIN D [Concomitant]
     Active Substance: VITAMIN D NOS
  2. VALTREX [Concomitant]
     Active Substance: VALACYCLOVIR HYDROCHLORIDE
  3. FISH OIL [Concomitant]
     Active Substance: FISH OIL
  4. MULTI?VITAMIN [Concomitant]
     Active Substance: .ALPHA.-TOCOPHEROL ACETATE, DL-\ASCORBIC ACID\CYANOCOBALAMIN\FLUORIDE ION\FOLIC ACID\NIACIN\PYRIDOXINE\RIBOFLAVIN\THIAMINE\VITAMIN A\VITAMIN D
  5. KYLEENA [Suspect]
     Active Substance: LEVONORGESTREL
     Dates: start: 20200617, end: 20200710
  6. ATENOLOL. [Concomitant]
     Active Substance: ATENOLOL
  7. TOPAMAX [Concomitant]
     Active Substance: TOPIRAMATE

REACTIONS (13)
  - Groin pain [None]
  - Lethargy [None]
  - Pain in extremity [None]
  - Vomiting [None]
  - Acne [None]
  - Decreased appetite [None]
  - Diarrhoea [None]
  - Muscle spasms [None]
  - Abdominal pain upper [None]
  - Haemorrhage [None]
  - Fatigue [None]
  - Uterine pain [None]
  - Weight increased [None]

NARRATIVE: CASE EVENT DATE: 20200617
